FAERS Safety Report 8326336-X (Version None)
Quarter: 2012Q2

REPORT INFORMATION
  Report Type: 
  Country: None (occurrence: None)
  Receive Date: 20120501
  Receipt Date: 20120423
  Transmission Date: 20120825
  Serious: Yes (Other)
  Sender: FDA-Public Use
  Company Number: US-MUTUAL PHARMACEUTICAL COMPANY, INC.-QNSF20120005

PATIENT
  Sex: Female

DRUGS (3)
  1. RITONAVIR [Suspect]
     Indication: DRUG LEVEL
     Route: 048
  2. QUININE SULFATE [Suspect]
     Indication: DRUG LEVEL
     Route: 048
  3. RITONAVIR [Suspect]
     Route: 048

REACTIONS (5)
  - FATIGUE [None]
  - PALPITATIONS [None]
  - NAUSEA [None]
  - RASH [None]
  - ELECTROCARDIOGRAM QT PROLONGED [None]
